FAERS Safety Report 16638681 (Version 1)
Quarter: 2019Q3

REPORT INFORMATION
  Report Type: Spontaneous
  Country: JP (occurrence: JP)
  Receive Date: 20190726
  Receipt Date: 20190726
  Transmission Date: 20191004
  Serious: Yes (Other)
  Sender: FDA-Public Use
  Company Number: JP-UCBSA-2019031747

PATIENT
  Sex: Female

DRUGS (4)
  1. GABAPEN [Concomitant]
     Active Substance: GABAPENTIN
     Indication: EPILEPSY
     Route: 048
  2. E KEPPRA [Suspect]
     Active Substance: LEVETIRACETAM
     Indication: EPILEPSY
     Dosage: UNK
     Route: 048
     Dates: start: 201803
  3. E KEPPRA [Suspect]
     Active Substance: LEVETIRACETAM
     Dosage: 2500 MILLIGRAM PER DAY
     Route: 048
  4. TEGRETOL [Concomitant]
     Active Substance: CARBAMAZEPINE
     Indication: EPILEPSY
     Route: 048

REACTIONS (3)
  - Asthma [Unknown]
  - Nasopharyngitis [Unknown]
  - Dyspnoea [Unknown]
